FAERS Safety Report 9185985 (Version 1)
Quarter: 2013Q1

REPORT INFORMATION
  Report Type: Spontaneous
  Country: TT (occurrence: TT)
  Receive Date: 20130325
  Receipt Date: 20130325
  Transmission Date: 20140127
  Serious: Yes (Other)
  Sender: FDA-Public Use
  Company Number: TT-B.I. PHARMACEUTICALS,INC./RIDGEFIELD-2013-CN-00446CN

PATIENT
  Age: 66 Year
  Sex: Male

DRUGS (1)
  1. AGGRENOX [Suspect]
     Dates: start: 2008

REACTIONS (2)
  - Cerebrovascular accident [Unknown]
  - Coagulation time shortened [Unknown]
